FAERS Safety Report 9959027 (Version 1)
Quarter: 2014Q1

REPORT INFORMATION
  Report Type: Spontaneous
  Country: US (occurrence: None)
  Receive Date: 20140228
  Receipt Date: 20140228
  Transmission Date: 20141002
  Serious: Yes (Disabling, Other)
  Sender: FDA-Public Use
  Company Number: None

PATIENT
  Age: 65 Year
  Sex: Female
  Weight: 62.14 kg

DRUGS (4)
  1. MIRALAX [Suspect]
     Indication: CONSTIPATION
     Dosage: 3/4 CAPFUL DAILY, BY MOUTH
     Route: 048
     Dates: start: 2008, end: 20140207
  2. MULTIVITAMEN [Concomitant]
  3. VITAMEN D (1000 U) [Concomitant]
  4. CALCIUM CARBONATE [Concomitant]

REACTIONS (1)
  - Blood creatinine increased [None]
